FAERS Safety Report 21290435 (Version 1)
Quarter: 2022Q3

REPORT INFORMATION
  Report Type: Spontaneous
  Country: JP (occurrence: JP)
  Receive Date: 20220902
  Receipt Date: 20220902
  Transmission Date: 20221027
  Serious: Yes (Hospitalization, Other)
  Sender: FDA-Public Use
  Company Number: JP-ALVOGEN-2022-ALVOGEN-120804

PATIENT
  Age: 34 Year
  Sex: Female

DRUGS (3)
  1. DEXAMETHASONE [Suspect]
     Active Substance: DEXAMETHASONE
     Indication: POEMS syndrome
  2. DARATUMUMAB [Suspect]
     Active Substance: DARATUMUMAB
     Indication: POEMS syndrome
     Dosage: ON DAYS 1, 8, 15, AND 22 DURING CYCLES 1 AND 2, ON DAYS 1 AND 15 DURING CYCLES 3 AND 4
  3. LENALIDOMIDE [Suspect]
     Active Substance: LENALIDOMIDE
     Indication: POEMS syndrome
     Dosage: ON DAYS 1 TO 21 IN 28-DAY CYCLES OF DLD THERAPY
     Route: 048

REACTIONS (2)
  - Diarrhoea [Unknown]
  - White blood cell count decreased [Unknown]
